FAERS Safety Report 4421109-2 (Version None)
Quarter: 2004Q3

REPORT INFORMATION
  Report Type: 
  Country: None (occurrence: None)
  Receive Date: 20040803
  Receipt Date: 20040725
  Transmission Date: 20050211
  Serious: Yes (Other)
  Sender: FDA-Public Use
  Company Number: 200413653BCC

PATIENT
  Age: 13 Year
  Sex: Female
  Weight: 79.3795 kg

DRUGS (1)
  1. RID MOUSSE [Suspect]
     Dosage: ONCE, TOPICAL
     Route: 061
     Dates: start: 20040722

REACTIONS (3)
  - HEADACHE [None]
  - NAUSEA [None]
  - SYNCOPE [None]
